FAERS Safety Report 4540671-2 (Version None)
Quarter: 2004Q4

REPORT INFORMATION
  Report Type: 
  Country: None (occurrence: None)
  Receive Date: 20041229
  Receipt Date: 20041222
  Transmission Date: 20050328
  Serious: Yes (Hospitalization)
  Sender: FDA-Public Use
  Company Number: TH-BRISTOL-MYERS SQUIBB COMPANY-12803268

PATIENT
  Age: 69 Year
  Sex: Female

DRUGS (7)
  1. GATIFLOXACIN [Suspect]
     Indication: RESPIRATORY TRACT INFECTION
  2. ROFECOXIB [Concomitant]
     Indication: RESPIRATORY TRACT INFECTION
  3. METOPROLOL TARTRATE [Concomitant]
  4. AMILORIDE [Concomitant]
  5. HYDROCHLOROTHIAZIDE [Concomitant]
  6. L-THYROXINE [Concomitant]
  7. FENOFIBRATE [Concomitant]

REACTIONS (1)
  - HYPERGLYCAEMIA [None]
